FAERS Safety Report 9848653 (Version 4)
Quarter: 2014Q1

REPORT INFORMATION
  Report Type: Spontaneous
  Country: GB (occurrence: GB)
  Receive Date: 20140128
  Receipt Date: 20140310
  Transmission Date: 20141002
  Serious: Yes (Other)
  Sender: FDA-Public Use
  Company Number: GB-RANBAXY-2014R1-77618

PATIENT
  Sex: Female

DRUGS (18)
  1. CETIRIZINE [Suspect]
     Indication: URTICARIA CHRONIC
     Route: 065
  2. CETIRIZINE [Suspect]
     Indication: ANGIOEDEMA
  3. FEXOFENADINE [Suspect]
     Indication: URTICARIA CHRONIC
     Route: 065
  4. FEXOFENADINE [Suspect]
     Indication: ANGIOEDEMA
  5. LORATADINE [Suspect]
     Indication: URTICARIA CHRONIC
     Dosage: UNK
     Route: 048
  6. LORATADINE [Suspect]
     Indication: ANGIOEDEMA
  7. PREDNISOLONE [Suspect]
     Indication: URTICARIA CHRONIC
     Dosage: 25-40MG PER WEEK
     Route: 065
  8. PREDNISOLONE [Suspect]
     Indication: ANGIOEDEMA
     Dosage: UNK
     Route: 065
  9. CICLOSPORIN [Suspect]
     Indication: URTICARIA CHRONIC
     Dosage: UNK
     Route: 065
  10. CICLOSPORIN [Suspect]
     Indication: ANGIOEDEMA
  11. DAPSONE [Suspect]
     Indication: ANGIOEDEMA
     Dosage: 50 MG, 1/WEEK
     Route: 065
  12. DAPSONE [Suspect]
     Indication: URTICARIA CHRONIC
  13. HYDROXYCHLOROQUINE [Suspect]
     Indication: URTICARIA CHRONIC
     Dosage: 400 MG, PER DAY
     Route: 065
  14. HYDROXYCHLOROQUINE [Suspect]
     Indication: ANGIOEDEMA
     Dosage: 200 MG, PER DAY
     Route: 065
  15. HYDROXYZINE [Suspect]
     Indication: ANGIOEDEMA
     Dosage: UNK
     Route: 065
  16. HYDROXYZINE [Suspect]
     Indication: URTICARIA CHRONIC
  17. METHOTREXATE [Suspect]
     Indication: URTICARIA CHRONIC
     Dosage: UNK
     Route: 048
  18. METHOTREXATE [Suspect]
     Indication: ANGIOEDEMA

REACTIONS (6)
  - Asthma [Not Recovered/Not Resolved]
  - Blood pressure increased [Unknown]
  - Urticaria [Not Recovered/Not Resolved]
  - Drug ineffective [Unknown]
  - Drug effect incomplete [Not Recovered/Not Resolved]
  - Angioedema [Not Recovered/Not Resolved]
